FAERS Safety Report 5008361-X (Version None)
Quarter: 2006Q2

REPORT INFORMATION
  Report Type: 
  Country: None (occurrence: None)
  Receive Date: 20060404
  Receipt Date: 20060125
  Transmission Date: 20061013
  Serious: No
  Sender: FDA-Public Use
  Company Number: US200601005159

PATIENT
  Age: 53 Year
  Sex: Female

DRUGS (3)
  1. CYMBALTA [Suspect]
     Dosage: 60 MG, CAPSULE, ORAL
     Route: 048
  2. STRATTERA [Suspect]
     Dosage: 25 MG, CAPSULE, ORAL
     Route: 048
  3. WELLBUTRIN - SLOW RELEASE (IBUPROPION HYDROCHLORIDE) [Concomitant]

REACTIONS (1)
  - MIGRAINE [None]
